FAERS Safety Report 7894829-5 (Version None)
Quarter: 2011Q4

REPORT INFORMATION
  Report Type: 
  Country: None (occurrence: None)
  Receive Date: 20111102
  Receipt Date: 20111018
  Transmission Date: 20120403
  Serious: Yes (Other)
  Sender: FDA-Public Use
  Company Number: B0758559A

PATIENT

DRUGS (2)
  1. LAPATINIB [Suspect]
     Indication: HEAD AND NECK CANCER
     Dosage: ORAL
     Route: 048
  2. RADIOTHERAPY [Concomitant]

REACTIONS (1)
  - HAEMOLYTIC ANAEMIA [None]
